FAERS Safety Report 6579475-8 (Version None)
Quarter: 2010Q1

REPORT INFORMATION
  Report Type: 
  Country: None (occurrence: None)
  Receive Date: 20100203
  Receipt Date: 20100118
  Transmission Date: 20100710
  Serious: Yes (Death)
  Sender: FDA-Public Use
  Company Number: B0627663A

PATIENT
  Age: 49 Year
  Sex: Female

DRUGS (6)
  1. LAMOTRIGINE [Suspect]
     Dosage: ORAL
     Route: 048
  2. ACETAMINOPHEN- PROPOXYPHENE HCL TAB [Suspect]
     Dosage: ORAL
     Route: 048
  3. CYCLOBENZAPRINE HCL [Suspect]
     Dosage: ORAL
     Route: 048
  4. ETHANOL (FORMULATION UNKNOWN) (ALCOHOL) [Suspect]
     Dosage: ORAL
     Route: 048
  5. ZOPICLONE (FORMULATION UNKNOWN) (ZOPICLONE) [Suspect]
     Dosage: ORAL
     Route: 048
  6. ANTIHISTAMINE (FORMULATION UNKNOWN) (ANTIHISTIMINE) [Suspect]
     Dosage: ORAL
     Route: 048

REACTIONS (2)
  - CARDIO-RESPIRATORY ARREST [None]
  - COMPLETED SUICIDE [None]
